FAERS Safety Report 25656219 (Version 1)
Quarter: 2025Q3

REPORT INFORMATION
  Report Type: Spontaneous
  Country: US (occurrence: US)
  Receive Date: 20250807
  Receipt Date: 20250807
  Transmission Date: 20251020
  Serious: Yes (Other)
  Sender: PARATEK PHARMACEUTICALS
  Company Number: US-PARATEK PHARMACEUTICALS, INC.-2025PTK00934

PATIENT
  Age: 72 Year
  Sex: Female

DRUGS (3)
  1. OMADACYCLINE [Suspect]
     Active Substance: OMADACYCLINE
     Indication: Bronchiectasis
     Route: 048
  2. OMADACYCLINE [Suspect]
     Active Substance: OMADACYCLINE
     Indication: Mycobacterium abscessus infection
  3. AMIKACIN SULFATE [Concomitant]
     Active Substance: AMIKACIN SULFATE

REACTIONS (2)
  - Mycobacterium avium complex infection [Not Recovered/Not Resolved]
  - Off label use [Not Recovered/Not Resolved]
